FAERS Safety Report 17084371 (Version 1)
Quarter: 2020Q3

REPORT INFORMATION
  Report Type: Report from Study
  Country: RU (occurrence: RU)
  Receive Date: 20191127
  Receipt Date: 20191127
  Transmission Date: 20201104
  Serious: Yes (Hospitalization)
  Sender: FDA-Public Use
  Company Number: RU-CELGENEUS-RUS-20191109746

PATIENT
  Age: 80 Year
  Sex: Female

DRUGS (5)
  1. AZACITIDINE. [Suspect]
     Active Substance: AZACITIDINE
     Indication: MYELODYSPLASTIC SYNDROME
     Route: 065
     Dates: start: 20190423
  2. PEVONEDISTAT. [Suspect]
     Active Substance: PEVONEDISTAT
     Indication: MYELODYSPLASTIC SYNDROME
     Route: 065
     Dates: start: 20190423
  3. CO DALNESSA [Concomitant]
     Indication: PRODUCT USED FOR UNKNOWN INDICATION
     Route: 065
     Dates: start: 201811
  4. AQUADETRIM D3 [Concomitant]
     Indication: PRODUCT USED FOR UNKNOWN INDICATION
     Route: 065
     Dates: start: 20190719
  5. PANANGIN FORTE [Concomitant]
     Indication: PRODUCT USED FOR UNKNOWN INDICATION
     Route: 065
     Dates: start: 20190410

REACTIONS (1)
  - Paronychia [Not Recovered/Not Resolved]

NARRATIVE: CASE EVENT DATE: 20191118
